FAERS Safety Report 5507686-9 (Version None)
Quarter: 2007Q4

REPORT INFORMATION
  Report Type: 
  Country: None (occurrence: None)
  Receive Date: 20071106
  Receipt Date: 20071029
  Transmission Date: 20080405
  Serious: Yes (Hospitalization)
  Sender: FDA-Public Use
  Company Number: B0486949A

PATIENT
  Age: 7 Month
  Sex: Female

DRUGS (4)
  1. COMBIVIR [Suspect]
     Indication: HIV INFECTION
  2. NEVIRAPINE [Suspect]
     Indication: HIV INFECTION
  3. FERROUS SULFATE TAB [Suspect]
  4. ZIDOVUDINE [Suspect]
     Indication: ANTIVIRAL PROPHYLAXIS
     Dosage: 4MGK TWICE PER DAY
     Route: 048

REACTIONS (11)
  - ACIDOSIS [None]
  - AMMONIA INCREASED [None]
  - BLOOD AMINO ACID LEVEL INCREASED [None]
  - DEPRESSED LEVEL OF CONSCIOUSNESS [None]
  - EATING DISORDER [None]
  - FOETAL GROWTH RETARDATION [None]
  - GRUNTING [None]
  - LETHARGY [None]
  - METHYLMALONIC ACIDURIA [None]
  - PALLOR [None]
  - RHINITIS [None]
